FAERS Safety Report 7479042-8 (Version None)
Quarter: 2011Q2

REPORT INFORMATION
  Report Type: 
  Country: None (occurrence: None)
  Receive Date: 20110513
  Receipt Date: 20110504
  Transmission Date: 20111010
  Serious: Yes (Other)
  Sender: FDA-Public Use
  Company Number: PHHY2011GB38208

PATIENT
  Age: 69 Year
  Sex: Male

DRUGS (10)
  1. LERCANIDIPINE [Concomitant]
     Dosage: 10 MG, QD
  2. SPIRONOLACTONE [Suspect]
     Dosage: 25 MG, QD
     Dates: start: 20000701
  3. FUROSEMIDE [Concomitant]
     Dosage: 40 MG, QD
  4. ATENOLOL [Concomitant]
     Dosage: 50 MG, QD
  5. OMEPRAZOLE [Concomitant]
     Dosage: 20 MG, QD
  6. OFLOXACIN [Concomitant]
     Indication: PROSTATITIS
  7. SULINDAC [Concomitant]
  8. ATORVASTATIN [Concomitant]
     Dosage: 10 MG, QD
  9. TRANDOLAPRIL [Concomitant]
     Dosage: 2 MG, QD
  10. TAMSULOSIN HCL [Concomitant]
     Indication: PROSTATITIS

REACTIONS (6)
  - OEDEMA PERIPHERAL [None]
  - LETHARGY [None]
  - NIPPLE PAIN [None]
  - NEPHROPATHY [None]
  - GLOMERULONEPHRITIS MEMBRANOUS [None]
  - PROTEINURIA [None]
